FAERS Safety Report 5343821-3 (Version None)
Quarter: 2007Q2

REPORT INFORMATION
  Report Type: 
  Country: None (occurrence: None)
  Receive Date: 20070604
  Receipt Date: 20070522
  Transmission Date: 20071010
  Serious: Yes (Hospitalization, Disabling)
  Sender: FDA-Public Use
  Company Number: NL-AMGEN-US220659

PATIENT
  Sex: Female
  Weight: 75 kg

DRUGS (2)
  1. ENBREL [Suspect]
     Indication: RHEUMATOID ARTHRITIS
     Route: 058
     Dates: start: 20061028, end: 20070301
  2. PREDNISOLONE [Concomitant]
     Dosage: 7.5 MG
     Route: 065
     Dates: start: 20000101

REACTIONS (5)
  - INFECTION [None]
  - PNEUMONIA [None]
  - SPINAL COMPRESSION FRACTURE [None]
  - SPINAL CORD INJURY [None]
  - VERTEBRAL ABSCESS [None]
